FAERS Safety Report 25917308 (Version 2)
Quarter: 2025Q4

REPORT INFORMATION
  Report Type: Spontaneous
  Country: US (occurrence: US)
  Receive Date: 20251014
  Receipt Date: 20251022
  Transmission Date: 20260118
  Serious: Yes (Hospitalization)
  Sender: BRISTOL-MYERS SQUIBB COMPANY
  Company Number: US-BRISTOL-MYERS SQUIBB COMPANY-2025-139498

PATIENT
  Age: 82 Year
  Sex: Male

DRUGS (3)
  1. REVLIMID [Suspect]
     Active Substance: LENALIDOMIDE
     Indication: Plasma cell myeloma
     Dates: start: 202506
  2. REVLIMID [Suspect]
     Active Substance: LENALIDOMIDE
     Dosage: QD (EVERY DAY) FOR 2 WEEKS ON AND 1 WEEK OFF
     Dates: start: 202509
  3. REVLIMID [Suspect]
     Active Substance: LENALIDOMIDE
     Dosage: QD (EVERY DAY) FOR 2 WEEKS ON AND 1 WEEK OFF
     Dates: start: 20251016

REACTIONS (4)
  - Urinary tract infection [Recovered/Resolved]
  - Headache [Unknown]
  - Speech disorder [Unknown]
  - Incoherent [Unknown]

NARRATIVE: CASE EVENT DATE: 20250101
